FAERS Safety Report 7142263-8 (Version None)
Quarter: 2010Q4

REPORT INFORMATION
  Report Type: 
  Country: None (occurrence: None)
  Receive Date: 20101203
  Receipt Date: 20101203
  Transmission Date: 20110411
  Serious: Yes (Hospitalization)
  Sender: FDA-Public Use
  Company Number: None

PATIENT
  Age: 47 Year
  Sex: Female
  Weight: 105.9 kg

DRUGS (1)
  1. LISINOPRIL [Suspect]

REACTIONS (1)
  - RENAL FAILURE ACUTE [None]
